FAERS Safety Report 17961299 (Version 1)
Quarter: 2020Q2

REPORT INFORMATION
  Report Type: Spontaneous
  Country: US (occurrence: US)
  Receive Date: 20200629
  Receipt Date: 20200629
  Transmission Date: 20200714
  Serious: No
  Sender: FDA-Public Use
  Company Number: US-ROCHE-2442604

PATIENT
  Age: 57 Year
  Sex: Female

DRUGS (2)
  1. XELODA [Suspect]
     Active Substance: CAPECITABINE
     Dosage: YES
     Route: 048
  2. XELODA [Suspect]
     Active Substance: CAPECITABINE
     Indication: PANCREATIC CARCINOMA
     Dosage: 2 TABLETS EVERY MORNING, 3 TABLETS ;ONGOING: NO
     Route: 048
     Dates: start: 20190701

REACTIONS (5)
  - Oral discomfort [Not Recovered/Not Resolved]
  - Palmar-plantar erythrodysaesthesia syndrome [Not Recovered/Not Resolved]
  - Mucosal inflammation [Not Recovered/Not Resolved]
  - Lip swelling [Not Recovered/Not Resolved]
  - Skin exfoliation [Not Recovered/Not Resolved]

NARRATIVE: CASE EVENT DATE: 201909
